FAERS Safety Report 12660045 (Version 2)
Quarter: 2016Q4

REPORT INFORMATION
  Report Type: Spontaneous
  Country: CH (occurrence: FR)
  Receive Date: 20160817
  Receipt Date: 20161026
  Transmission Date: 20170207
  Serious: Yes (Hospitalization)
  Sender: FDA-Public Use
  Company Number: CH-LPDUSPRD-20160713

PATIENT
  Age: 4 Year
  Sex: Female

DRUGS (1)
  1. VENOFER [Suspect]
     Active Substance: IRON SUCROSE
     Dosage: UNKNOWN
     Route: 065
     Dates: start: 20160613, end: 20160718

REACTIONS (7)
  - Off label use [Unknown]
  - Cyanosis [Unknown]
  - Arrhythmia [Unknown]
  - Transfusion [Recovered/Resolved]
  - Dyskinesia [Unknown]
  - Abdominal pain [Unknown]
  - Incorrect drug administration duration [Unknown]

NARRATIVE: CASE EVENT DATE: 20160613
